FAERS Safety Report 10150275 (Version 4)
Quarter: 2014Q2

REPORT INFORMATION
  Report Type: Spontaneous
  Country: JP (occurrence: JP)
  Receive Date: 20140502
  Receipt Date: 20140528
  Transmission Date: 20141212
  Serious: Yes (Other)
  Sender: FDA-Public Use
  Company Number: JP-UCBSA-119277

PATIENT
  Age: 18 Year
  Sex: Male

DRUGS (3)
  1. E KEPPRA [Suspect]
     Indication: EPILEPSY
     Dosage: 500 MG, ONCE DAILY (QD)
     Route: 048
     Dates: start: 20140331, end: 20140406
  2. DEPAKENE-R [Suspect]
     Dosage: 1000MG DAILY
     Route: 048
  3. RIVOTRIL [Suspect]
     Dosage: 0.5MG
     Route: 048

REACTIONS (2)
  - Angioedema [Recovered/Resolved]
  - Headache [Recovered/Resolved]
